FAERS Safety Report 18010056 (Version 1)
Quarter: 2020Q3

REPORT INFORMATION
  Report Type: Spontaneous
  Country: PA (occurrence: PA)
  Receive Date: 20200710
  Receipt Date: 20200710
  Transmission Date: 20201103
  Serious: Yes (Hospitalization, Other)
  Sender: FDA-Public Use
  Company Number: PA-GLAXOSMITHKLINE-PA2020AMR115193

PATIENT
  Age: 19 Year
  Sex: Male

DRUGS (1)
  1. LAMOTRIGINE. [Suspect]
     Active Substance: LAMOTRIGINE
     Indication: SEIZURE
     Dosage: UNK

REACTIONS (24)
  - Asthenia [Unknown]
  - Pyrexia [Unknown]
  - Oral mucosal erythema [Unknown]
  - Toxic epidermal necrolysis [Unknown]
  - Malaise [Unknown]
  - Pruritus [Unknown]
  - Sensitive skin [Unknown]
  - Skin exfoliation [Unknown]
  - Dyskinesia [Unknown]
  - Gastrointestinal sounds abnormal [Unknown]
  - Erythema [Unknown]
  - Mucosal exfoliation [Unknown]
  - Stevens-Johnson syndrome [Unknown]
  - Blister [Unknown]
  - Dehydration [Unknown]
  - Purpura [Unknown]
  - Photophobia [Unknown]
  - Conjunctivitis [Unknown]
  - Ocular hyperaemia [Unknown]
  - Purulent discharge [Unknown]
  - Skin lesion [Unknown]
  - Oral pain [Unknown]
  - Ulcerative keratitis [Unknown]
  - Rash macular [Unknown]
